FAERS Safety Report 10186081 (Version 2)
Quarter: 2016Q3

REPORT INFORMATION
  Report Type: Spontaneous
  Country: FR (occurrence: FR)
  Receive Date: 20140521
  Receipt Date: 20160912
  Transmission Date: 20161108
  Serious: Yes (Other)
  Sender: FDA-Public Use
  Company Number: CHPA2014FR006649

PATIENT
  Age: 51 Year
  Sex: Male
  Weight: 28 kg

DRUGS (2)
  1. SCOPODERM TTS [Suspect]
     Active Substance: SCOPOLAMINE
     Dosage: 1 DF, QD
     Route: 062
     Dates: start: 20140228, end: 20140504
  2. SCOPODERM TTS [Suspect]
     Active Substance: SCOPOLAMINE
     Indication: PALLIATIVE CARE
     Dosage: 1 DF, QD
     Route: 062
     Dates: start: 20140228, end: 20140504

REACTIONS (3)
  - Condition aggravated [Recovering/Resolving]
  - Rash [Recovering/Resolving]
  - Off label use [Unknown]

NARRATIVE: CASE EVENT DATE: 20140301
